FAERS Safety Report 11230854 (Version 1)
Quarter: 2015Q3

REPORT INFORMATION
  Report Type: Spontaneous
  Country: DE (occurrence: DE)
  Receive Date: 20150701
  Receipt Date: 20150701
  Transmission Date: 20151125
  Serious: Yes (Hospitalization)
  Sender: FDA-Public Use
  Company Number: DE-JNJFOC-20150623159

PATIENT
  Age: 83 Year
  Sex: Female

DRUGS (5)
  1. METOPROLOL [Concomitant]
     Active Substance: METOPROLOL
     Route: 065
  2. RAMIPRIL. [Concomitant]
     Active Substance: RAMIPRIL
     Route: 065
  3. XARELTO [Suspect]
     Active Substance: RIVAROXABAN
     Indication: PRODUCT USED FOR UNKNOWN INDICATION
     Route: 048
     Dates: start: 20141109, end: 20150402
  4. PANTOPRAZOLE [Concomitant]
     Active Substance: PANTOPRAZOLE SODIUM
     Route: 065
  5. DIGIMERCK [Concomitant]
     Active Substance: DIGITOXIN
     Route: 065
     Dates: end: 20150415

REACTIONS (3)
  - Cardiac arrest [Unknown]
  - Pneumonia aspiration [Unknown]
  - Epistaxis [Unknown]

NARRATIVE: CASE EVENT DATE: 20150402
